FAERS Safety Report 5236970-1 (Version None)
Quarter: 2007Q1

REPORT INFORMATION
  Report Type: 
  Country: None (occurrence: None)
  Receive Date: 20070213
  Receipt Date: 20070205
  Transmission Date: 20070707
  Serious: Yes (Death, Life-Threatening, Other)
  Sender: FDA-Public Use
  Company Number: GB-JNJFOC-20061204981

PATIENT
  Sex: Male
  Weight: 63 kg

DRUGS (11)
  1. REMICADE [Suspect]
     Indication: ANKYLOSING SPONDYLITIS
     Route: 042
  2. METHOTREXATE [Concomitant]
     Route: 065
  3. PREDNISOLONE [Concomitant]
     Route: 065
  4. ACETAMINOPHEN AND CODEINE PHOSPHATE [Concomitant]
     Route: 065
  5. FERROUS SULFATE TAB [Concomitant]
     Route: 065
  6. FOLIC ACID [Concomitant]
     Route: 065
  7. FOSAMAX [Concomitant]
     Route: 065
  8. LUSTRAL [Concomitant]
     Route: 065
  9. MESALAZINE [Concomitant]
     Route: 065
  10. RANITIDINE [Concomitant]
     Route: 065
  11. ZOPICLONE [Concomitant]
     Route: 065

REACTIONS (1)
  - AORTIC VALVE STENOSIS [None]
